FAERS Safety Report 8810808 (Version 1)
Quarter: 2012Q4

REPORT INFORMATION
  Report Type: Report from Study
  Country: CA (occurrence: CA)
  Receive Date: 20120927
  Receipt Date: 20120927
  Transmission Date: 20130627
  Serious: Yes (Other)
  Sender: FDA-Public Use
  Company Number: CA-JNJFOC-20120908281

PATIENT
  Sex: Female
  Weight: 58 kg

DRUGS (4)
  1. REMICADE [Suspect]
     Indication: CROHN^S DISEASE
     Route: 042
     Dates: start: 20111115
  2. AERIUS [Concomitant]
     Indication: PREMEDICATION
     Route: 065
  3. TYLENOL [Concomitant]
     Indication: PREMEDICATION
     Route: 065
  4. SOLUCORTEF [Concomitant]
     Route: 042

REACTIONS (5)
  - Psoriasis [Not Recovered/Not Resolved]
  - Pain [Recovered/Resolved]
  - Musculoskeletal stiffness [Recovered/Resolved]
  - Joint lock [Recovered/Resolved]
  - Antinuclear antibody increased [Unknown]
